FAERS Safety Report 7007844-0 (Version None)
Quarter: 2010Q3

REPORT INFORMATION
  Report Type: 
  Country: None (occurrence: None)
  Receive Date: 20100922
  Receipt Date: 20100921
  Transmission Date: 20110219
  Serious: Yes (Life-Threatening)
  Sender: FDA-Public Use
  Company Number: DE-SANOFI-AVENTIS-2010SA056460

PATIENT
  Age: 79 Year
  Sex: Male
  Weight: 93 kg

DRUGS (8)
  1. MULTAQ [Suspect]
     Route: 048
     Dates: start: 20100408, end: 20100510
  2. MARCUMAR [Concomitant]
     Dosage: DOSAGE: ACCORDING TO INR
     Route: 048
     Dates: start: 20100408
  3. PRAVASTATIN [Concomitant]
     Dosage: DOSAGE: 1/2 TABLET DAILY
     Route: 048
     Dates: start: 20100408
  4. ALENDRONATE SODIUM [Concomitant]
     Indication: OSTEOPOROSIS
     Route: 048
     Dates: start: 20100408
  5. TORASEMIDE [Concomitant]
     Route: 048
     Dates: start: 20100408
  6. METOPROLOL SUCCINATE [Concomitant]
     Indication: HYPERTENSION
     Dosage: DOSAGE: 1/2 TABLET TWICE A DAY
     Route: 048
     Dates: start: 20100408
  7. ENALAPRIL MALEATE [Concomitant]
     Indication: HYPERTENSION
     Route: 048
     Dates: start: 20100408
  8. FAMOTIDINE [Concomitant]
     Indication: GASTRITIS
     Route: 048
     Dates: start: 20100408

REACTIONS (5)
  - ANGINA PECTORIS [None]
  - CHEST DISCOMFORT [None]
  - CYANOSIS [None]
  - MOVEMENT DISORDER [None]
  - PAIN [None]
